FAERS Safety Report 11356540 (Version 1)
Quarter: 2015Q3

REPORT INFORMATION
  Report Type: Spontaneous
  Country: PT (occurrence: PT)
  Receive Date: 20150807
  Receipt Date: 20150807
  Transmission Date: 20151125
  Serious: Yes (Hospitalization)
  Sender: FDA-Public Use
  Company Number: PHHY2015PT092255

PATIENT
  Age: 40 Year
  Sex: Female

DRUGS (2)
  1. PROPANOLOL [Concomitant]
     Active Substance: PROPRANOLOL HYDROCHLORIDE
     Indication: BASEDOW^S DISEASE
     Dosage: 30 MG, QD
     Route: 065
  2. THIAMAZOLE [Suspect]
     Active Substance: METHIMAZOLE
     Indication: BASEDOW^S DISEASE
     Dosage: 15 MG, QD
     Route: 065

REACTIONS (4)
  - Erythema [Unknown]
  - Agranulocytosis [Recovering/Resolving]
  - Odynophagia [Unknown]
  - Pyrexia [Recovered/Resolved]
